FAERS Safety Report 7764580-0 (Version None)
Quarter: 2011Q3

REPORT INFORMATION
  Report Type: 
  Country: None (occurrence: None)
  Receive Date: 20110921
  Receipt Date: 20110919
  Transmission Date: 20111222
  Serious: Yes (Hospitalization, Other)
  Sender: FDA-Public Use
  Company Number: US-PFIZER INC-2011222316

PATIENT
  Sex: Female
  Weight: 82 kg

DRUGS (5)
  1. SIMVASTATIN [Concomitant]
     Indication: BLOOD CHOLESTEROL ABNORMAL
     Dosage: UNK
  2. NITROGLYCERIN [Concomitant]
     Dosage: UNK
  3. ACETYLSALICYLIC ACID [Concomitant]
     Dosage: 81 MG, UNK
  4. VENTOLIN HFA [Concomitant]
     Indication: ASTHMA
     Dosage: UNK
  5. NIFEDIPINE [Suspect]
     Indication: HYPERTENSION
     Dosage: UNK
     Dates: start: 20050401, end: 20050101

REACTIONS (6)
  - HEADACHE [None]
  - BLOOD PRESSURE INCREASED [None]
  - ARRHYTHMIA [None]
  - DIZZINESS [None]
  - CARDIAC FLUTTER [None]
  - DYSPNOEA [None]
